FAERS Safety Report 15499198 (Version 1)
Quarter: 2018Q4

REPORT INFORMATION
  Report Type: Spontaneous
  Country: US (occurrence: US)
  Receive Date: 20181006
  Receipt Date: 20181006
  Transmission Date: 20190205
  Serious: Yes (Life-Threatening)
  Sender: FDA-Public Use
  Company Number: None

PATIENT
  Age: 65 Year
  Sex: Female
  Weight: 81 kg

DRUGS (9)
  1. VITAMIN D3 [Concomitant]
     Active Substance: CHOLECALCIFEROL
  2. UBIQUNOL [Concomitant]
  3. HCL WITH PEPSIN [Concomitant]
  4. ANCEF [Suspect]
     Active Substance: CEFAZOLIN SODIUM
     Indication: WRIST SURGERY
     Dates: start: 20180427, end: 20180427
  5. VITAMIN C [Concomitant]
     Active Substance: ASCORBIC ACID
  6. MAGNESIUM [Concomitant]
     Active Substance: MAGNESIUM
  7. ZINC. [Concomitant]
     Active Substance: ZINC
  8. DIGESTIVE ENZYMES [Concomitant]
     Active Substance: UNSPECIFIED INGREDIENT
  9. COLLAGEN HYDROLYSATE [Concomitant]

REACTIONS (1)
  - Anaphylactic shock [None]

NARRATIVE: CASE EVENT DATE: 20180427
